FAERS Safety Report 5213591-8 (Version None)
Quarter: 2007Q1

REPORT INFORMATION
  Report Type: 
  Country: None (occurrence: None)
  Receive Date: 20070119
  Receipt Date: 20061219
  Transmission Date: 20070707
  Serious: Yes (Death)
  Sender: FDA-Public Use
  Company Number: DE-BOEHRINGER INGELHEIM GMBH, GERMANY-2006-DE-06788GD

PATIENT

DRUGS (3)
  1. NEVIRAPINE [Suspect]
     Indication: HIV INFECTION
  2. LOPINAVIR/RITONAVIR [Suspect]
     Indication: HIV INFECTION
  3. ANTI-HIV AGENT [Suspect]
     Indication: HIV INFECTION

REACTIONS (1)
  - NON-HODGKIN'S LYMPHOMA [None]
